FAERS Safety Report 15854948 (Version 1)
Quarter: 2019Q1

REPORT INFORMATION
  Report Type: Spontaneous
  Country: NL (occurrence: NL)
  Receive Date: 20190122
  Receipt Date: 20190122
  Transmission Date: 20190417
  Serious: Yes (Other)
  Sender: FDA-Public Use
  Company Number: NL-TEVA-2019-NL-1001776

PATIENT
  Age: 51 Year
  Sex: Male
  Weight: 66 kg

DRUGS (10)
  1. B12 HOLLAND+BARRETT [Concomitant]
  2. KLISMA [Concomitant]
     Dosage: (2X / YEAR)
  3. D3 HEMA [Concomitant]
  4. MACROGOL EN ELECTROLYTEN [Concomitant]
     Dosage: (10 BAGS / YEAR)
  5. CARBAMAZEPINE TABLET, 100 MG (MILLIGRAM) [Suspect]
     Active Substance: CARBAMAZEPINE
     Indication: BIPOLAR DISORDER
     Dosage: 2.5 TIMES A DAY (2X1 AND 1X0.5)
     Route: 065
     Dates: start: 20170508
  6. MULTI TOTAAL HEMA [Concomitant]
  7. KRUIDVAT ECHINICEA [Concomitant]
  8. CLOZAPINE. [Concomitant]
     Active Substance: CLOZAPINE
  9. PROPRANOLOL [Concomitant]
     Active Substance: PROPRANOLOL HYDROCHLORIDE
  10. PRIADEL [Concomitant]
     Active Substance: LITHIUM

REACTIONS (3)
  - Cognitive disorder [Not Recovered/Not Resolved]
  - Loss of consciousness [Not Recovered/Not Resolved]
  - Salivary hypersecretion [Not Recovered/Not Resolved]

NARRATIVE: CASE EVENT DATE: 20170911
